FAERS Safety Report 16970857 (Version 1)
Quarter: 2019Q4

REPORT INFORMATION
  Report Type: Spontaneous
  Country: US (occurrence: US)
  Receive Date: 20191029
  Receipt Date: 20191029
  Transmission Date: 20200122
  Serious: Yes (Hospitalization, Other)
  Sender: FDA-Public Use
  Company Number: US-TEVA-2019-US-1128808

PATIENT
  Age: 54 Year
  Sex: Female

DRUGS (4)
  1. FOLINIC ACID [Suspect]
     Active Substance: LEUCOVORIN
     Indication: GASTRIC CANCER STAGE IV
     Dosage: START PERIOD: 1 DAYS
     Route: 065
  2. DOCETAXEL. [Suspect]
     Active Substance: DOCETAXEL
     Indication: GASTRIC CANCER STAGE IV
     Dosage: START PERIOD: 1 DAYS
     Route: 065
  3. OXALIPLATIN. [Suspect]
     Active Substance: OXALIPLATIN
     Indication: GASTRIC CANCER STAGE IV
     Dosage: START PERIOD:1 DAYS
     Route: 065
  4. 5-FLUOROURACIL [Suspect]
     Active Substance: FLUOROURACIL
     Indication: GASTRIC CANCER STAGE IV
     Dosage: FIRST DOSE OF SHORT-TERM INFUSION,START PERIOD:1 DAYS

REACTIONS (5)
  - Cardiotoxicity [Unknown]
  - Blood pressure decreased [Recovered/Resolved]
  - Vomiting [Unknown]
  - Left ventricular dysfunction [Recovered/Resolved]
  - Aphasia [Recovering/Resolving]
